FAERS Safety Report 6528025-0 (Version None)
Quarter: 2010Q1

REPORT INFORMATION
  Report Type: 
  Country: None (occurrence: None)
  Receive Date: 20100106
  Receipt Date: 20100104
  Transmission Date: 20100710
  Serious: Yes (Hospitalization)
  Sender: FDA-Public Use
  Company Number: FR-BRISTOL-MYERS SQUIBB COMPANY-14919500

PATIENT
  Age: 73 Year
  Sex: Female

DRUGS (4)
  1. APROVEL TABS 75 MG [Suspect]
     Route: 048
     Dates: start: 20090101, end: 20090912
  2. LOPRESSOR [Concomitant]
  3. CHRONADALATE [Concomitant]
  4. TEMESTA [Concomitant]

REACTIONS (3)
  - HAEMATOMA [None]
  - PETECHIAE [None]
  - THROMBOCYTOPENIA [None]
